FAERS Safety Report 18931002 (Version 1)
Quarter: 2021Q1

REPORT INFORMATION
  Report Type: Report from Study
  Country: GB (occurrence: GB)
  Receive Date: 20210223
  Receipt Date: 20210223
  Transmission Date: 20210420
  Serious: Yes (Death)
  Sender: FDA-Public Use
  Company Number: GB-GILEAD-2021-0518441

PATIENT
  Sex: Male

DRUGS (1)
  1. REMDESIVIR. [Suspect]
     Active Substance: REMDESIVIR
     Indication: COVID-19
     Dosage: UNK
     Route: 042
     Dates: start: 202009

REACTIONS (3)
  - COVID-19 [Fatal]
  - Alanine aminotransferase increased [Recovering/Resolving]
  - Liver function test increased [Recovering/Resolving]
